FAERS Safety Report 6132362-1 (Version None)
Quarter: 2009Q1

REPORT INFORMATION
  Report Type: 
  Country: None (occurrence: None)
  Receive Date: 20090324
  Receipt Date: 20090313
  Transmission Date: 20090719
  Serious: Yes (Hospitalization)
  Sender: FDA-Public Use
  Company Number: 220006K09BRA

PATIENT
  Age: 11 Year
  Sex: Male

DRUGS (1)
  1. SAIZEN [Suspect]
     Dosage: 8 MG, 1 IN 1 DAYS
     Dates: start: 20081105, end: 20090201

REACTIONS (1)
  - OPTIC NEURITIS [None]
